FAERS Safety Report 18633494 (Version 2)
Quarter: 2020Q4

REPORT INFORMATION
  Report Type: Report from Study
  Country: None (occurrence: US)
  Receive Date: 20201218
  Receipt Date: 20201222
  Transmission Date: 20210114
  Serious: Yes (Other)
  Sender: FDA-Public Use
  Company Number: US-ABBVIE-20K-163-3692952-00

PATIENT
  Sex: Female
  Weight: 41.31 kg

DRUGS (3)
  1. CREON [Suspect]
     Active Substance: PANCRELIPASE AMYLASE\PANCRELIPASE LIPASE\PANCRELIPASE PROTEASE
     Indication: PANCREATIC FAILURE
     Dosage: REDUCED TO 3000 UNITS
     Route: 048
     Dates: start: 202009, end: 2020
  2. CREON [Suspect]
     Active Substance: PANCRELIPASE AMYLASE\PANCRELIPASE LIPASE\PANCRELIPASE PROTEASE
     Indication: PANCREATITIS
     Dosage: DOSE LOWER/INCREASED BACK, LESS PER DOSE
     Route: 048
     Dates: start: 2020, end: 2020
  3. CREON [Suspect]
     Active Substance: PANCRELIPASE AMYLASE\PANCRELIPASE LIPASE\PANCRELIPASE PROTEASE
     Route: 048
     Dates: start: 2020, end: 202012

REACTIONS (6)
  - Flatulence [Recovered/Resolved]
  - Adverse reaction [Not Recovered/Not Resolved]
  - Abdominal distension [Recovered/Resolved]
  - Hospice care [Unknown]
  - Diarrhoea [Not Recovered/Not Resolved]
  - Weight decreased [Not Recovered/Not Resolved]

NARRATIVE: CASE EVENT DATE: 2020
